FAERS Safety Report 7511431-5 (Version None)
Quarter: 2011Q2

REPORT INFORMATION
  Report Type: 
  Country: None (occurrence: None)
  Receive Date: 20110531
  Receipt Date: 20110520
  Transmission Date: 20111010
  Serious: Yes (Life-Threatening, Hospitalization, Other)
  Sender: FDA-Public Use
  Company Number: DE-US-EMD SERONO, INC.-7061113

PATIENT
  Age: 23 Year
  Sex: Female
  Weight: 52 kg

DRUGS (3)
  1. LEONA-HEXAL [Concomitant]
     Dosage: 0.1/0.02 MG
     Route: 048
     Dates: start: 20010101
  2. REBIF [Suspect]
     Indication: MULTIPLE SCLEROSIS
     Route: 058
     Dates: start: 20060501, end: 20090601
  3. REBIF [Suspect]
     Route: 058
     Dates: start: 20090601, end: 20110119

REACTIONS (3)
  - HEPATITIS ACUTE [None]
  - ACUTE HEPATIC FAILURE [None]
  - DIARRHOEA [None]
